FAERS Safety Report 10257085 (Version 1)
Quarter: 2014Q2

REPORT INFORMATION
  Report Type: Spontaneous
  Country: FR (occurrence: FR)
  Receive Date: 20140625
  Receipt Date: 20140625
  Transmission Date: 20141212
  Serious: Yes (Hospitalization)
  Sender: FDA-Public Use
  Company Number: FR-ACCORD-024390

PATIENT
  Age: 68 Year
  Sex: Male

DRUGS (11)
  1. DOCETAXEL ACCORD [Suspect]
     Indication: SQUAMOUS CELL CARCINOMA OF PHARYNX
     Dosage: SINGLE INTAKE
     Route: 042
     Dates: start: 20140227, end: 20140227
  2. ORAMORPH [Concomitant]
     Route: 048
  3. CISPLATIN MYLAN [Concomitant]
     Dosage: IN SINGLE INTAKE
     Route: 042
     Dates: start: 20140227
  4. SKENAN [Concomitant]
     Dosage: PROLONGED-RELEASE MICROGRANULES IN CAPSULE
     Route: 048
  5. TAHOR [Concomitant]
     Route: 048
  6. ZOPICLONE [Concomitant]
     Dosage: IF INSOMNIA
     Route: 048
  7. NO DRUG NAME [Concomitant]
     Route: 042
     Dates: start: 20140227, end: 20140303
  8. ENALAPRIL [Concomitant]
     Route: 048
  9. PLAVIX [Concomitant]
     Route: 048
  10. LERCAN [Concomitant]
     Route: 048
  11. NEBIVOLOL [Concomitant]
     Route: 048

REACTIONS (4)
  - Abdominal sepsis [Recovered/Resolved]
  - Off label use [Unknown]
  - Colitis [Recovered/Resolved]
  - Pancytopenia [Recovered/Resolved]
